FAERS Safety Report 16565795 (Version 1)
Quarter: 2019Q3

REPORT INFORMATION
  Report Type: Spontaneous
  Country: US (occurrence: US)
  Receive Date: 20190712
  Receipt Date: 20190712
  Transmission Date: 20191004
  Serious: Yes (Hospitalization)
  Sender: FDA-Public Use
  Company Number: US-VERTEX PHARMACEUTICALS-2019-006399

PATIENT
  Sex: Female

DRUGS (10)
  1. AZITHROMYCIN ANHYDROUS. [Concomitant]
     Active Substance: AZITHROMYCIN ANHYDROUS
     Dosage: 500 MG
  2. SYMBICORT [Concomitant]
     Active Substance: BUDESONIDE\FORMOTEROL FUMARATE DIHYDRATE
     Dosage: UNK
  3. LINEZOLID. [Concomitant]
     Active Substance: LINEZOLID
     Dosage: 600 MG
  4. PULMOZYME [Concomitant]
     Active Substance: DORNASE ALFA
     Dosage: 1 MG
  5. DOXYCYCLINE. [Concomitant]
     Active Substance: DOXYCYCLINE
     Dosage: 100 MG
  6. DEXAMETHASONE. [Concomitant]
     Active Substance: DEXAMETHASONE
     Dosage: 6 MG
  7. SYMDEKO [Suspect]
     Active Substance: IVACAFTOR\TEZACAFTOR
     Indication: CYSTIC FIBROSIS
     Dosage: 100MG TEZACAFTOR/150MG IVACAFTOR AM; 150MG IVACAFTOR PM
     Route: 048
  8. SINGULAIR [Concomitant]
     Active Substance: MONTELUKAST SODIUM
     Dosage: 10 MG
  9. LEVALBUTEROL TARTRATE. [Concomitant]
     Active Substance: LEVALBUTEROL TARTRATE
     Dosage: 45 MICROGRAM
  10. CETIRIZINE [Concomitant]
     Active Substance: CETIRIZINE HYDROCHLORIDE
     Dosage: 10 MG

REACTIONS (1)
  - Infective pulmonary exacerbation of cystic fibrosis [Not Recovered/Not Resolved]

NARRATIVE: CASE EVENT DATE: 2019
